FAERS Safety Report 11705140 (Version 1)
Quarter: 2015Q4

REPORT INFORMATION
  Report Type: Spontaneous
  Country: JP (occurrence: JP)
  Receive Date: 20151106
  Receipt Date: 20151106
  Transmission Date: 20160304
  Serious: Yes (Other)
  Sender: FDA-Public Use
  Company Number: JP-ASTELLAS-2015JP022031

PATIENT
  Age: 72 Year
  Sex: Male
  Weight: 54 kg

DRUGS (8)
  1. FUNGUARD [Suspect]
     Active Substance: MICAFUNGIN SODIUM
     Indication: FEBRILE NEUTROPENIA
     Route: 041
     Dates: start: 20150821, end: 20150826
  2. FUNGUARD [Suspect]
     Active Substance: MICAFUNGIN SODIUM
     Indication: PNEUMONIA ASPIRATION
  3. VANCOMYCIN [Suspect]
     Active Substance: VANCOMYCIN
     Indication: FEBRILE NEUTROPENIA
     Route: 041
     Dates: start: 20150820, end: 20150831
  4. ANAEMETRO [Suspect]
     Active Substance: METRONIDAZOLE
     Indication: FEBRILE NEUTROPENIA
     Route: 041
     Dates: start: 20150821, end: 20150831
  5. PASIL [Suspect]
     Active Substance: PAZUFLOXACIN MESILATE
     Indication: PNEUMONIA ASPIRATION
  6. VANCOMYCIN [Suspect]
     Active Substance: VANCOMYCIN
     Indication: PNEUMONIA ASPIRATION
  7. ANAEMETRO [Suspect]
     Active Substance: METRONIDAZOLE
     Indication: PNEUMONIA ASPIRATION
  8. PASIL [Suspect]
     Active Substance: PAZUFLOXACIN MESILATE
     Indication: FEBRILE NEUTROPENIA
     Route: 041
     Dates: start: 20150820, end: 20150830

REACTIONS (1)
  - Vitamin K deficiency [Recovered/Resolved]

NARRATIVE: CASE EVENT DATE: 20150824
